FAERS Safety Report 5138712-7 (Version None)
Quarter: 2006Q4

REPORT INFORMATION
  Report Type: 
  Country: None (occurrence: None)
  Receive Date: 20061030
  Receipt Date: 20061019
  Transmission Date: 20070319
  Serious: Yes (Other)
  Sender: FDA-Public Use
  Company Number: US-JNJFOC-20060904278

PATIENT
  Sex: Female
  Weight: 69.4 kg

DRUGS (12)
  1. REMICADE [Suspect]
     Route: 042
  2. REMICADE [Suspect]
     Route: 042
  3. REMICADE [Suspect]
     Route: 042
  4. REMICADE [Suspect]
     Route: 042
  5. REMICADE [Suspect]
     Indication: CROHN'S DISEASE
     Route: 042
  6. PREDNISONE TAB [Concomitant]
  7. PREMARIN [Concomitant]
     Route: 048
  8. ALPRAZOLAM [Concomitant]
     Route: 048
  9. POTASSIUM CHLORIDE [Concomitant]
     Route: 048
  10. MERCAPTOPURINE [Concomitant]
     Route: 048
  11. TRAMADOL HCL [Concomitant]
     Route: 048
  12. CENTRUM MULTIVITAMIN [Concomitant]
     Route: 048

REACTIONS (1)
  - DIFFUSE LARGE B-CELL LYMPHOMA [None]
